FAERS Safety Report 8243565-4 (Version None)
Quarter: 2012Q1

REPORT INFORMATION
  Report Type: 
  Country: None (occurrence: None)
  Receive Date: 20120329
  Receipt Date: 20120327
  Transmission Date: 20120608
  Serious: Yes (Other)
  Sender: FDA-Public Use
  Company Number: PHHO2011DE021229

PATIENT
  Sex: Female
  Weight: 86 kg

DRUGS (2)
  1. MEDROXYPROGESTERONE ACETATE [Concomitant]
     Indication: CONTRACEPTION
     Dosage: 150 MG, UNK
     Dates: start: 20030101
  2. FTY [Suspect]
     Indication: RELAPSING-REMITTING MULTIPLE SCLEROSIS
     Dosage: 0.5 MG, QD
     Route: 048
     Dates: start: 20110629, end: 20111220

REACTIONS (1)
  - DYSPLASTIC NAEVUS [None]
